FAERS Safety Report 11435077 (Version 1)
Quarter: 2015Q3

REPORT INFORMATION
  Report Type: Spontaneous
  Country: US (occurrence: US)
  Receive Date: 20150831
  Receipt Date: 20150831
  Transmission Date: 20151125
  Serious: No
  Sender: FDA-Public Use
  Company Number: US-ELI_LILLY_AND_COMPANY-US201508007409

PATIENT
  Sex: Female

DRUGS (1)
  1. HUMALOG [Suspect]
     Active Substance: INSULIN LISPRO
     Indication: TYPE 1 DIABETES MELLITUS
     Dosage: 12.5 U, QD
     Route: 058
     Dates: start: 201411

REACTIONS (4)
  - Drug hypersensitivity [Unknown]
  - Compulsions [Unknown]
  - Medication error [Unknown]
  - Blood glucose increased [Recovered/Resolved]
